FAERS Safety Report 21892867 (Version 1)
Quarter: 2023Q1

REPORT INFORMATION
  Report Type: Spontaneous
  Country: CA (occurrence: CA)
  Receive Date: 20230120
  Receipt Date: 20230120
  Transmission Date: 20230417
  Serious: Yes (Hospitalization, Other)
  Sender: FDA-Public Use
  Company Number: CA-BAUSCH-BL-2023-001046

PATIENT
  Sex: Female

DRUGS (7)
  1. ALBUTEROL [Suspect]
     Active Substance: ALBUTEROL
     Indication: Asthma
     Dosage: NOT SPECIFIED
     Route: 065
  2. ALVESCO [Suspect]
     Active Substance: CICLESONIDE
     Indication: Product used for unknown indication
     Dosage: AEROSOL, METERED DOSE
     Route: 065
  3. ARNUITY ELLIPTA [Suspect]
     Active Substance: FLUTICASONE FUROATE
     Indication: Product used for unknown indication
     Route: 065
  4. GLYCOPYRROLATE\INDACATEROL MALEATE [Suspect]
     Active Substance: GLYCOPYRROLATE\INDACATEROL MALEATE
     Indication: Product used for unknown indication
     Route: 065
  5. NUCALA [Suspect]
     Active Substance: MEPOLIZUMAB
     Indication: Asthma
     Route: 042
  6. PREDNISONE [Suspect]
     Active Substance: PREDNISONE
     Indication: Product used for unknown indication
     Dosage: NOT SPECIFIED
     Route: 065
  7. PULMICORT TURBUHALER [Suspect]
     Active Substance: BUDESONIDE
     Indication: Product used for unknown indication
     Dosage: NOT SPECIFIED ROUTE INHALATION
     Route: 050

REACTIONS (10)
  - Asthma [Recovered/Resolved]
  - Dyspnoea [Recovered/Resolved]
  - Hip fracture [Recovered/Resolved]
  - Loss of personal independence in daily activities [Recovered/Resolved]
  - Oxygen saturation decreased [Recovered/Resolved]
  - Sleep disorder due to a general medical condition [Recovered/Resolved]
  - Fatigue [Recovered/Resolved]
  - Wheezing [Recovered/Resolved]
  - Therapeutic product effect decreased [Recovered/Resolved]
  - Therapeutic product effect incomplete [Recovered/Resolved]
